FAERS Safety Report 16616013 (Version 2)
Quarter: 2024Q4

REPORT INFORMATION
  Report Type: Spontaneous
  Country: FR (occurrence: FR)
  Receive Date: 20190723
  Receipt Date: 20241029
  Transmission Date: 20250115
  Serious: Yes (Death, Other)
  Sender: MYLAN
  Company Number: FR-AFSSAPS-AM20190280

PATIENT
  Age: 70 Year
  Sex: Female
  Weight: 120 kg

DRUGS (23)
  1. EXEMESTANE [Suspect]
     Active Substance: EXEMESTANE
     Indication: Breast cancer
     Dosage: 1 DOSAGE FORM, QD
     Route: 048
     Dates: end: 20190123
  2. CETIRIZINE [Suspect]
     Active Substance: CETIRIZINE HYDROCHLORIDE
     Indication: Product used for unknown indication
     Dosage: 1 DOSAGE FORM, QD
     Route: 048
     Dates: end: 20190123
  3. ACETAMINOPHEN [Suspect]
     Active Substance: ACETAMINOPHEN
     Indication: Pain
     Dosage: 3 DOSAGE FORM, QD
     Route: 048
     Dates: end: 20190123
  4. METFORMIN [Suspect]
     Active Substance: METFORMIN HYDROCHLORIDE
     Indication: Type 2 diabetes mellitus
     Dosage: 3000 MILLIGRAM, QD
     Route: 048
     Dates: end: 20190123
  5. METHYLPREDNISOLONE [Suspect]
     Active Substance: METHYLPREDNISOLONE
     Indication: Product used for unknown indication
     Dosage: 80 MILLIGRAM, QD
     Route: 042
     Dates: start: 20190118, end: 20190123
  6. ENALAPRIL [Suspect]
     Active Substance: ENALAPRIL
     Indication: Product used for unknown indication
     Dosage: 20 MILLIGRAM, QD
     Route: 048
     Dates: start: 20190116, end: 20190123
  7. OXAZEPAM [Suspect]
     Active Substance: OXAZEPAM
     Indication: Mixed anxiety and depressive disorder
     Dosage: 1 DOSAGE FORM, QD
     Route: 048
     Dates: end: 20190123
  8. LYRICA [Suspect]
     Active Substance: PREGABALIN
     Indication: Diabetic neuropathy
     Dosage: 3 DOSAGE FORM, QD
     Route: 048
     Dates: end: 20190123
  9. PHLOROGLUCINOL [Suspect]
     Active Substance: PHLOROGLUCINOL
     Indication: Abdominal pain
     Dosage: 2 DOSAGE FORM, TID
     Route: 042
     Dates: start: 20190118, end: 20190121
  10. TRIMEBUTINE [Suspect]
     Active Substance: TRIMEBUTINE
     Indication: Abdominal pain
     Dosage: 2 DOSAGE FORM, TID
     Route: 042
     Dates: start: 20190118, end: 20190123
  11. LANTUS [Suspect]
     Active Substance: INSULIN GLARGINE
     Indication: Type 2 diabetes mellitus
     Dosage: 20 INTERNATIONAL UNIT, QD
     Route: 058
     Dates: end: 20190123
  12. DALTEPARIN SODIUM [Suspect]
     Active Substance: DALTEPARIN SODIUM
     Indication: Prophylaxis
     Dosage: 1 DOSAGE FORM, QD
     Route: 058
     Dates: start: 20190117, end: 20190123
  13. PRIMPERAN [Suspect]
     Active Substance: METOCLOPRAMIDE HYDROCHLORIDE
     Indication: Vomiting
     Dosage: 1 DOSAGE FORM, TID
     Route: 042
     Dates: start: 20190118, end: 20190123
  14. EUPANTOL [Suspect]
     Active Substance: PANTOPRAZOLE SODIUM
     Indication: Abdominal pain
     Dosage: 2 DOSAGE FORM, QD
     Route: 048
     Dates: start: 20190116, end: 20190123
  15. AUGMENTIN [Suspect]
     Active Substance: AMOXICILLIN\CLAVULANATE POTASSIUM
     Indication: Lung disorder
     Dosage: 3 DOSAGE FORM, QD
     Route: 042
     Dates: start: 20190118, end: 20190123
  16. OPTIRAY [Suspect]
     Active Substance: IOVERSOL
     Indication: Computerised tomogram abdomen
     Dosage: 350 MILLIGRAM, TOTAL 350 MG D^I/ML, SOLUTION INJECTABLE EN FLACON )
     Route: 042
     Dates: start: 20190118, end: 20190118
  17. ATROVENT [Suspect]
     Active Substance: IPRATROPIUM BROMIDE
     Indication: Lung disorder
     Dosage: 3 DOSAGE FORM, QD
     Route: 065
     Dates: start: 20190116, end: 20190123
  18. VOGALENE [Suspect]
     Active Substance: METOPIMAZINE
     Indication: Vomiting
     Dosage: 3 DOSAGE FORM, QD
     Route: 048
     Dates: end: 20190123
  19. AMLODIPINE BESYLATE [Suspect]
     Active Substance: AMLODIPINE BESYLATE
     Indication: Hypertension
     Dosage: 1 DOSAGE FORM, QD
     Route: 048
     Dates: end: 20190123
  20. ALBUTEROL [Suspect]
     Active Substance: ALBUTEROL
     Indication: Lung disorder
     Dosage: 3 DOSAGE FORM, QD
     Route: 065
     Dates: start: 20190116, end: 20190123
  21. INSULIN HUMAN [Suspect]
     Active Substance: INSULIN HUMAN
     Indication: Type 2 diabetes mellitus
     Dosage: 12 INTERNATIONAL UNIT, QD
     Route: 058
     Dates: end: 20190123
  22. VISIPAQUE [Suspect]
     Active Substance: IODIXANOL
     Indication: Computerised tomogram
     Dosage: 320 MILLIGRAM, TOTAL (320 MG D^I/ML, SOLUTION INJECTABLE)
     Route: 042
     Dates: start: 20190116, end: 20190116
  23. FUROSEMIDE [Concomitant]
     Active Substance: FUROSEMIDE
     Dosage: UNK
     Route: 065

REACTIONS (4)
  - Acute kidney injury [Fatal]
  - Cardiac arrest [Fatal]
  - Lactic acidosis [Fatal]
  - Hyperkalaemia [Recovered/Resolved]

NARRATIVE: CASE EVENT DATE: 20190123
